FAERS Safety Report 6582702-4 (Version None)
Quarter: 2010Q1

REPORT INFORMATION
  Report Type: 
  Country: None (occurrence: None)
  Receive Date: 20100203
  Receipt Date: 20100125
  Transmission Date: 20100710
  Serious: Yes (Death)
  Sender: FDA-Public Use
  Company Number: DSA_42175_2009

PATIENT
  Sex: Female
  Weight: 53.978 kg

DRUGS (21)
  1. XENAZINE [Suspect]
     Indication: ESSENTIAL TREMOR
     Dosage: SEE IMAGE
     Route: 048
     Dates: start: 20090217, end: 20090301
  2. XENAZINE [Suspect]
     Indication: ESSENTIAL TREMOR
     Dosage: SEE IMAGE
     Route: 048
     Dates: start: 20090301, end: 20090401
  3. XENAZINE [Suspect]
     Indication: ESSENTIAL TREMOR
     Dosage: SEE IMAGE
     Route: 048
     Dates: start: 20090401, end: 20090901
  4. XENAZINE [Suspect]
     Indication: ESSENTIAL TREMOR
     Dosage: SEE IMAGE
     Route: 048
     Dates: start: 20090901, end: 20091101
  5. PRIMIDONE [Suspect]
     Indication: DRUG USE FOR UNKNOWN INDICATION
     Dosage: (250 MG QD), (1/2 TABLET HS)
     Dates: end: 20090401
  6. PRIMIDONE [Suspect]
     Indication: DRUG USE FOR UNKNOWN INDICATION
     Dosage: (250 MG QD), (1/2 TABLET HS)
     Dates: start: 20090401
  7. PROPRANOLOL HYDROCHLORIDE [Suspect]
     Indication: DRUG USE FOR UNKNOWN INDICATION
     Dosage: (120 MG BID)
  8. TRAZODONE HCL [Suspect]
     Indication: DRUG USE FOR UNKNOWN INDICATION
     Dosage: (Q HS)
     Dates: start: 20091001
  9. FUROSEMIDE [Concomitant]
  10. B12-VITAMIN [Concomitant]
  11. TOBRAMYCIN SULFATE [Concomitant]
  12. ALPHAGAN P [Concomitant]
  13. LISINOPRIL [Concomitant]
  14. SIMVASTATIN [Concomitant]
  15. TRAVATAN Z [Concomitant]
  16. ALENDRONATE SODIUM [Concomitant]
  17. VENLAFAXINE HCL [Concomitant]
  18. ACETAMINOPHEN AND HYDROCODONE BITARTRATE [Concomitant]
  19. TACLONEX [Concomitant]
  20. TRAUMEEL S /01124601/ [Concomitant]
  21. CITALOPRAM HYDROBROMIDE [Concomitant]

REACTIONS (11)
  - ANXIETY [None]
  - CONDITION AGGRAVATED [None]
  - DECREASED APPETITE [None]
  - DEPRESSION [None]
  - DRUG INEFFECTIVE [None]
  - INSOMNIA [None]
  - OEDEMA PERIPHERAL [None]
  - RESPIRATORY DISORDER [None]
  - SOMNOLENCE [None]
  - TREMOR [None]
  - WEIGHT DECREASED [None]
